FAERS Safety Report 8037405 (Version 3)
Quarter: 2013Q2

REPORT INFORMATION
  Report Type: Spontaneous
  Country: US (occurrence: None)
  Receive Date: 20110701
  Receipt Date: 20130409
  Transmission Date: 20140414
  Serious: Yes (Hospitalization, Other)
  Sender: FDA-Public Use
  Company Number: AUR-APL-2011-03742

PATIENT
  Age: 69 Year
  Sex: Female

DRUGS (17)
  1. ATENOLOL [Suspect]
     Indication: PRODUCT USED FOR UNKNOWN INDICATION
     Dosage: 200 MG (100 MG, 2 IN 1 D), ORAL
     Route: 048
  2. LISINOPRIL [Suspect]
     Indication: PRODUCT USED FOR UNKNOWN INDICATION
     Route: 048
  3. NEXIUM [Suspect]
     Indication: PRODUCT USED FOR UNKNOWN INDICATION
     Route: 048
  4. ALISKIREN FUMARATE (ALISKIREN FUMARATE) [Concomitant]
  5. SOTALOL [Concomitant]
  6. ALPRAZOLAM (ALPRAZOLAM) [Concomitant]
  7. ASPIRIN [Concomitant]
  8. PERCOCET [Concomitant]
  9. DILTIAZEM [Concomitant]
  10. POTASSIUM (POTASSIUM) [Concomitant]
  11. LASIX [Concomitant]
  12. SYNTHROID [Concomitant]
  13. CLONIDINE TRANSDERMAL SYSTEM [Concomitant]
  14. FENTANYL (FENTANYL) [Concomitant]
  15. FUROSEMIDE (FUROSEMIDE) [Concomitant]
  16. VERAPAMIL HYDROCHLORIDE [Concomitant]
  17. PRILOSEC [Suspect]
     Route: 048

REACTIONS (39)
  - Presyncope [None]
  - Palpitations [None]
  - Asthenia [None]
  - Hyperkalaemia [None]
  - Ear infection [None]
  - Urinary tract infection [None]
  - Nausea [None]
  - Vertigo [None]
  - Rales [None]
  - Cardiac murmur [None]
  - Blunted affect [None]
  - Gait disturbance [None]
  - Atrial fibrillation [None]
  - Atrial flutter [None]
  - Sick sinus syndrome [None]
  - Pneumonia [None]
  - Connective tissue disorder [None]
  - Body temperature increased [None]
  - Gastrooesophageal reflux disease [None]
  - Drug hypersensitivity [None]
  - Neuropathy peripheral [None]
  - Hypothyroidism [None]
  - Systemic lupus erythematosus [None]
  - Renal artery fibromuscular dysplasia [None]
  - Gastric operation [None]
  - Asthenia [None]
  - Infection [None]
  - Chest pain [None]
  - Cardiac murmur [None]
  - Back pain [None]
  - Malaise [None]
  - Movement disorder [None]
  - Dyspnoea [None]
  - Hernia [None]
  - Hyperchlorhydria [None]
  - Gait disturbance [None]
  - Sinus bradycardia [None]
  - Hyperkalaemia [None]
  - Hyperhidrosis [None]
